FAERS Safety Report 9407757 (Version 1)
Quarter: 2013Q1

REPORT INFORMATION
  Report Type: Spontaneous
  Country: DE (occurrence: None)
  Receive Date: 20130315
  Receipt Date: 20130315
  Transmission Date: 20140127
  Serious: Yes (Hospitalization)
  Sender: FDA-Public Use
  Company Number: GER/GER/12/0026925

PATIENT
  Age: 57 Year
  Sex: Male
  Weight: 81 kg

DRUGS (2)
  1. SIMVABETA 30 MG FILMTABLETTEN (SIMVASTATIN) [Suspect]
     Indication: HYPERLIPIDAEMIA
     Route: 048
  2. ROXITHROMYCIN STADA (ROXITHROMYCIN) [Suspect]
     Route: 048

REACTIONS (5)
  - Myalgia [None]
  - Angina pectoris [None]
  - Back pain [None]
  - Drug interaction [None]
  - Chest discomfort [None]
